FAERS Safety Report 21409004 (Version 1)
Quarter: 2022Q4

REPORT INFORMATION
  Report Type: Spontaneous
  Country: US (occurrence: US)
  Receive Date: 20221004
  Receipt Date: 20221004
  Transmission Date: 20230113
  Serious: No
  Sender: FDA-Public Use
  Company Number: US-SANOFI-01294176

PATIENT
  Sex: Female

DRUGS (1)
  1. INSULIN GLARGINE [Suspect]
     Active Substance: INSULIN GLARGINE

REACTIONS (5)
  - Weight increased [Unknown]
  - Hunger [Unknown]
  - Feeling jittery [Unknown]
  - Hyperphagia [Unknown]
  - Blood glucose abnormal [Unknown]
